FAERS Safety Report 10429807 (Version 1)
Quarter: 2014Q3

REPORT INFORMATION
  Report Type: Spontaneous
  Country: US (occurrence: None)
  Receive Date: 20140812
  Receipt Date: 20140812
  Transmission Date: 20150326
  Serious: Yes (Other)
  Sender: FDA-Public Use
  Company Number: PHEH2014US006607

PATIENT
  Age: 13 Year
  Sex: Female
  Weight: 45.7 kg

DRUGS (1)
  1. ILARIS [Suspect]
     Active Substance: CANAKINUMAB
     Indication: JUVENILE IDIOPATHIC ARTHRITIS
     Route: 058
     Dates: start: 20131219

REACTIONS (3)
  - Neutrophil count decreased [None]
  - Neutropenia [None]
  - Leukopenia [None]

NARRATIVE: CASE EVENT DATE: 20140120
